FAERS Safety Report 8817960 (Version 3)
Quarter: 2012Q4

REPORT INFORMATION
  Report Type: 
  Country: US (occurrence: US)
  Receive Date: 20121001
  Receipt Date: 20121016
  Transmission Date: 20130627
  Serious: Yes (Other)
  Sender: FDA-Public Use
  Company Number: US-GILEAD-2012-0061632

PATIENT
  Sex: Female

DRUGS (8)
  1. LETAIRIS [Suspect]
     Indication: PULMONARY HYPERTENSION
     Dosage: 10 mg, UNK
     Route: 048
     Dates: start: 20110223
  2. LETAIRIS [Suspect]
     Indication: UNEVALUABLE EVENT
     Dosage: 5 mg, UNK
     Route: 048
  3. LETAIRIS [Suspect]
     Indication: CORONARY ARTERY DISEASE
  4. LETAIRIS [Suspect]
     Indication: DIABETES MELLITUS
  5. LETAIRIS [Suspect]
     Indication: DIASTOLIC DYSFUNCTION
  6. LETAIRIS [Suspect]
     Indication: CHRONIC OBSTRUCTIVE PULMONARY DISEASE
  7. LETAIRIS [Suspect]
     Indication: ATRIAL SEPTAL DEFECT
  8. LETAIRIS [Suspect]
     Indication: CARDIAC FAILURE CONGESTIVE

REACTIONS (2)
  - Cardiac failure congestive [Unknown]
  - Oedema [Unknown]
